FAERS Safety Report 15108421 (Version 2)
Quarter: 2018Q3

REPORT INFORMATION
  Report Type: Report from Study
  Country: None (occurrence: AE)
  Receive Date: 20180705
  Receipt Date: 20180716
  Transmission Date: 20181010
  Serious: No
  Sender: FDA-Public Use
  Company Number: AE-ABBVIE-18K-166-2409886-00

PATIENT
  Sex: Female

DRUGS (3)
  1. AZATHIOPRINE. [Concomitant]
     Active Substance: AZATHIOPRINE
     Indication: PRODUCT USED FOR UNKNOWN INDICATION
     Dosage: TAKE WITH FOOD
     Route: 048
  2. HUMIRA [Suspect]
     Active Substance: ADALIMUMAB
     Indication: UVEITIS
     Dosage: INJECT 0.8 ML UNDER SKIN EVERY 2 WEEKS
     Route: 058
     Dates: start: 20171220
  3. HYALURONIC ACID 0.2%0.2 % [Concomitant]
     Indication: PRODUCT USED FOR UNKNOWN INDICATION
     Dosage: PLACE ONE DROP IN BOTH EYES IN MORNING , AT NOON , IN EVENING

REACTIONS (3)
  - Retinal degeneration [Unknown]
  - Vitreous haemorrhage [Unknown]
  - Visual acuity reduced [Unknown]

NARRATIVE: CASE EVENT DATE: 2018
